FAERS Safety Report 25790847 (Version 1)
Quarter: 2025Q3

REPORT INFORMATION
  Report Type: Spontaneous
  Country: US (occurrence: None)
  Receive Date: 20250911
  Receipt Date: 20250911
  Transmission Date: 20251021
  Serious: Yes (Hospitalization)
  Sender: FDA-CTU
  Company Number: None

PATIENT
  Age: 40 Year
  Sex: Female
  Weight: 94.3 kg

DRUGS (1)
  1. DENOSUMAB [Suspect]
     Active Substance: DENOSUMAB
     Dates: start: 20250430

REACTIONS (3)
  - Fall [None]
  - Rib fracture [None]
  - Pneumothorax [None]

NARRATIVE: CASE EVENT DATE: 20250514
